FAERS Safety Report 9058906 (Version 1)
Quarter: 2013Q1

REPORT INFORMATION
  Report Type: Spontaneous
  Country: US (occurrence: US)
  Receive Date: 20130211
  Receipt Date: 20130211
  Transmission Date: 20140127
  Serious: No
  Sender: FDA-Public Use
  Company Number: US-BRISTOL-MYERS SQUIBB COMPANY-16363038

PATIENT
  Age: 72 Year
  Sex: Male

DRUGS (5)
  1. GLUCOPHAGE [Suspect]
     Indication: TYPE 2 DIABETES MELLITUS
     Dates: start: 20111228
  2. LANTUS [Suspect]
     Indication: TYPE 2 DIABETES MELLITUS
     Dosage: 1DF:8 UNITS,LANTUS SOLOSTAR,PARENTERAL/INJECTION,SOLUTION/100 IU/ML
     Route: 058
     Dates: start: 20111228
  3. GLYBURIDE [Suspect]
     Indication: TYPE 2 DIABETES MELLITUS
     Dates: start: 20111228
  4. NIACIN [Suspect]
  5. JANUVIA [Suspect]

REACTIONS (3)
  - Flushing [Unknown]
  - Hyperhidrosis [Unknown]
  - Blood glucose increased [Unknown]
